FAERS Safety Report 8474261-6 (Version None)
Quarter: 2012Q2

REPORT INFORMATION
  Report Type: 
  Country: None (occurrence: None)
  Receive Date: 20120628
  Receipt Date: 20120622
  Transmission Date: 20120825
  Serious: Yes (Death)
  Sender: FDA-Public Use
  Company Number: JP-SANOFI-AVENTIS-2012SA045542

PATIENT
  Sex: Male

DRUGS (2)
  1. TAMSULOSIN HCL [Suspect]
     Route: 048
  2. ZOLPIDEM [Suspect]
     Route: 048

REACTIONS (2)
  - DEATH [None]
  - DRUG SCREEN POSITIVE [None]
